FAERS Safety Report 6491001-0 (Version None)
Quarter: 2009Q4

REPORT INFORMATION
  Report Type: 
  Country: None (occurrence: None)
  Receive Date: 20091211
  Receipt Date: 20091208
  Transmission Date: 20100525
  Serious: Yes (Hospitalization)
  Sender: FDA-Public Use
  Company Number: US-BRISTOL-MYERS SQUIBB COMPANY-14886790

PATIENT

DRUGS (3)
  1. ABILIFY [Suspect]
     Indication: BIPOLAR DISORDER
  2. CELEXA [Concomitant]
     Indication: BIPOLAR DISORDER
  3. LORAZEPAM [Concomitant]
     Indication: BIPOLAR DISORDER

REACTIONS (1)
  - RENAL FAILURE ACUTE [None]
